FAERS Safety Report 8543511 (Version 2)
Quarter: 2013Q1

REPORT INFORMATION
  Report Type: Spontaneous
  Country: US (occurrence: None)
  Receive Date: 20120423
  Receipt Date: 20130206
  Transmission Date: 20140127
  Serious: Yes (Hospitalization, Other)
  Sender: FDA-Public Use
  Company Number: DSA_56219_2012

PATIENT
  Age: 72 Year
  Sex: Female
  Weight: 76.93 kg

DRUGS (13)
  1. PEGAPTANIB SODIUM [Suspect]
     Indication: DIABETIC RETINAL OEDEMA
     Dosage: (DF INTRAOCULAR)
     Route: 031
     Dates: start: 20111212, end: 20120315
  2. NEO-MEDROL [Concomitant]
  3. URITOS [Concomitant]
  4. RABEPRAZOLE SODIUM [Concomitant]
  5. PATANOL [Concomitant]
  6. LEVEMIR [Concomitant]
  7. NOVORAPID [Concomitant]
  8. CANDESARTAN CILEXETIL AND HYDROCHLOROTHIAZIDE [Concomitant]
  9. CRESTOR [Concomitant]
  10. GLUCOBAY [Concomitant]
  11. URSO /00465701/ [Concomitant]
  12. METFORMIN HYDROCHLORIDE [Concomitant]
  13. CERCINE [Concomitant]

REACTIONS (4)
  - Dizziness [None]
  - Cerebral infarction [None]
  - Coronary artery stenosis [None]
  - Angina pectoris [None]
